FAERS Safety Report 4801666-4 (Version None)
Quarter: 2005Q4

REPORT INFORMATION
  Report Type: 
  Country: None (occurrence: None)
  Receive Date: 20051013
  Receipt Date: 20051013
  Transmission Date: 20060501
  Serious: Yes (Hospitalization)
  Sender: FDA-Public Use
  Company Number: None

PATIENT
  Sex: Male
  Weight: 73.0291 kg

DRUGS (1)
  1. FUROSEMIDE [Suspect]
     Dosage: 80 MG SINGLE DOSE
     Dates: start: 20051001

REACTIONS (3)
  - ANKLE FRACTURE [None]
  - FALL [None]
  - INJURY [None]
